FAERS Safety Report 15118072 (Version 2)
Quarter: 2019Q1

REPORT INFORMATION
  Report Type: Report from Study
  Country: CA (occurrence: CA)
  Receive Date: 20180707
  Receipt Date: 20190129
  Transmission Date: 20190417
  Serious: Yes (Hospitalization, Other)
  Sender: FDA-Public Use
  Company Number: CA-AMGEN-CANSL2018089106

PATIENT
  Age: 68 Year
  Sex: Female

DRUGS (1)
  1. PROLIA [Suspect]
     Active Substance: DENOSUMAB
     Indication: OSTEOPOROSIS POSTMENOPAUSAL
     Dosage: UNK
     Route: 065
     Dates: start: 201707

REACTIONS (16)
  - Throat irritation [Unknown]
  - Dyspnoea [Unknown]
  - Retinal operation [Unknown]
  - Malaise [Unknown]
  - Anxiety [Unknown]
  - Insomnia [Unknown]
  - Balance disorder [Unknown]
  - Weight decreased [Unknown]
  - Dizziness [Unknown]
  - Vertigo [Unknown]
  - Dyspepsia [Unknown]
  - Nasal inflammation [Not Recovered/Not Resolved]
  - Sinusitis [Recovered/Resolved]
  - Snoring [Unknown]
  - Decreased appetite [Unknown]
  - Nasopharyngitis [Unknown]

NARRATIVE: CASE EVENT DATE: 201805
